FAERS Safety Report 9640399 (Version 1)
Quarter: 2013Q4

REPORT INFORMATION
  Report Type: Spontaneous
  Country: US (occurrence: None)
  Receive Date: 20131022
  Receipt Date: 20131022
  Transmission Date: 20140711
  Serious: Yes (Other)
  Sender: FDA-Public Use
  Company Number: None

PATIENT
  Age: 78 Year
  Sex: Female

DRUGS (17)
  1. DELTASONE [Suspect]
     Indication: BACK PAIN
     Dosage: 10 MG, 12 DAY PK AS DIRECTED BY MOUTH
     Route: 048
     Dates: start: 20130828, end: 20130908
  2. SUTALOL [Concomitant]
  3. COZAAR [Concomitant]
  4. HYDROCHLOROTHIAZIDE [Concomitant]
  5. AMLODIPINE BESYLATE [Concomitant]
  6. PRADOXA [Concomitant]
  7. SYNTHROID [Concomitant]
  8. TRAZODENE [Concomitant]
  9. HYDROCODONE [Concomitant]
  10. PRILOSEC [Concomitant]
  11. B COMPLEX [Concomitant]
  12. FISH OIL [Concomitant]
  13. VIT. D [Concomitant]
  14. CALCIUM - CITRATE + D [Concomitant]
  15. BABY ASPIRIN [Concomitant]
  16. FOCUS ANTIBACTERIAL HAND SANITIZER [Concomitant]
  17. MORRHANE COMPOUND [Concomitant]

REACTIONS (2)
  - Atrial fibrillation [None]
  - Haematochezia [None]
